FAERS Safety Report 17420248 (Version 1)
Quarter: 2020Q1

REPORT INFORMATION
  Report Type: Spontaneous
  Country: US (occurrence: US)
  Receive Date: 20200214
  Receipt Date: 20200214
  Transmission Date: 20200409
  Serious: Yes (Hospitalization)
  Sender: FDA-Public Use
  Company Number: US-ASTRAZENECA-2020SE20760

PATIENT
  Age: 21881 Day
  Sex: Male
  Weight: 142.9 kg

DRUGS (8)
  1. BRILINTA [Suspect]
     Active Substance: TICAGRELOR
     Indication: MYOCARDIAL INFARCTION
     Route: 048
     Dates: start: 20190920
  2. LIPITOR [Concomitant]
     Active Substance: ATORVASTATIN CALCIUM
     Route: 048
  3. TIKOSYN [Concomitant]
     Active Substance: DOFETILIDE
     Indication: ARRHYTHMIA
     Route: 048
  4. FAMOTIDINE. [Concomitant]
     Active Substance: FAMOTIDINE
     Route: 048
  5. ELIQUIS [Concomitant]
     Active Substance: APIXABAN
     Indication: BLOOD CHLORIDE INCREASED
     Route: 048
     Dates: start: 20191218
  6. OMEPRAZOLE. [Concomitant]
     Active Substance: OMEPRAZOLE
  7. METHIMAZOLE. [Concomitant]
     Active Substance: METHIMAZOLE
     Indication: BASEDOW^S DISEASE
     Route: 048
  8. PRENIDSONE [Concomitant]
     Route: 048

REACTIONS (7)
  - Pyrexia [Unknown]
  - Weight decreased [Unknown]
  - Anaemia [Unknown]
  - Rash [Unknown]
  - Headache [Unknown]
  - Vasculitis [Unknown]
  - Chest pain [Unknown]

NARRATIVE: CASE EVENT DATE: 20191020
